FAERS Safety Report 6644323-4 (Version None)
Quarter: 2010Q1

REPORT INFORMATION
  Report Type: 
  Country: None (occurrence: None)
  Receive Date: 20100304
  Receipt Date: 20090204
  Transmission Date: 20100710
  Serious: Yes (Other)
  Sender: FDA-Public Use
  Company Number: US-002432

PATIENT
  Age: 46 Year
  Sex: Female
  Weight: 85 kg

DRUGS (7)
  1. ISOVUE-300 [Suspect]
     Indication: CHEST PAIN
     Dosage: 106ML QD INTRAVENOUS (NOT OTHERWISE SPECIFIED)
     Route: 042
     Dates: start: 20090203, end: 20090203
  2. SINGULAIR [Concomitant]
  3. METOPROLOL (METOPROLOL) [Concomitant]
  4. ADVAIR DISKUS 100/50 [Concomitant]
  5. PREDNISONE TAB [Concomitant]
  6. ALLEGRA D NASAL SPRAY (FEXOFENADINE; PSEUDOEPHEDRINE HYDROCHLORIDE) [Concomitant]
  7. ALBUTEROL [Concomitant]

REACTIONS (1)
  - HYPERSENSITIVITY [None]
